FAERS Safety Report 13851005 (Version 2)
Quarter: 2017Q4

REPORT INFORMATION
  Report Type: Report from Study
  Country: CO (occurrence: CO)
  Receive Date: 20170810
  Receipt Date: 20171206
  Transmission Date: 20180320
  Serious: Yes (Hospitalization, Other)
  Sender: FDA-Public Use
  Company Number: CO-AMGEN-COLSL2017030276

PATIENT
  Age: 52 Year
  Sex: Female
  Weight: 52 kg

DRUGS (2)
  1. NPLATE [Suspect]
     Active Substance: ROMIPLOSTIM
     Indication: IMMUNE THROMBOCYTOPENIC PURPURA
     Dosage: 250 MUG, QWK
     Route: 058
     Dates: start: 20150318
  2. NPLATE [Suspect]
     Active Substance: ROMIPLOSTIM
     Dosage: 197 MUG, QWK
     Route: 058

REACTIONS (4)
  - Platelet count abnormal [Not Recovered/Not Resolved]
  - Ecchymosis [Not Recovered/Not Resolved]
  - Thrombocytopenia [Recovered/Resolved]
  - Pain in extremity [Not Recovered/Not Resolved]

NARRATIVE: CASE EVENT DATE: 20170208
